FAERS Safety Report 4353849-8 (Version None)
Quarter: 2004Q2

REPORT INFORMATION
  Report Type: 
  Country: None (occurrence: None)
  Receive Date: 20040430
  Receipt Date: 20040427
  Transmission Date: 20050107
  Serious: Yes (Other)
  Sender: FDA-Public Use
  Company Number: 2004-04-1510

PATIENT
  Age: 12 Year
  Sex: Male
  Weight: 39 kg

DRUGS (1)
  1. AERIUS (DESLORATADINE) SYRUP [Suspect]
     Indication: RHINITIS ALLERGIC
     Dosage: 5 ML QD ORAL
     Route: 048
     Dates: start: 20040310, end: 20040311

REACTIONS (2)
  - DIZZINESS [None]
  - GAIT DISTURBANCE [None]
